FAERS Safety Report 25648407 (Version 3)
Quarter: 2025Q3

REPORT INFORMATION
  Report Type: Spontaneous
  Country: EU (occurrence: EU)
  Receive Date: 20250806
  Receipt Date: 20250814
  Transmission Date: 20251021
  Serious: Yes (Life-Threatening)
  Sender: ABBVIE
  Company Number: EU-PFIZER INC-PV202500093929

PATIENT
  Sex: Male

DRUGS (1)
  1. AVIBACTAM\AZTREONAM [Suspect]
     Active Substance: AVIBACTAM\AZTREONAM
     Indication: Product used for unknown indication
     Dates: end: 20250801

REACTIONS (1)
  - Multiple organ dysfunction syndrome [Unknown]

NARRATIVE: CASE EVENT DATE: 20250731
